FAERS Safety Report 5611669-8 (Version None)
Quarter: 2008Q1

REPORT INFORMATION
  Report Type: 
  Country: None (occurrence: None)
  Receive Date: 20080201
  Receipt Date: 20080118
  Transmission Date: 20080703
  Serious: Yes (Other)
  Sender: FDA-Public Use
  Company Number: US-AMGEN-STX261295

PATIENT
  Sex: Male

DRUGS (2)
  1. ENBREL [Suspect]
     Indication: RHEUMATOID ARTHRITIS
     Route: 058
     Dates: start: 20071021
  2. PLAQUENIL [Concomitant]
     Route: 065
     Dates: start: 19990101

REACTIONS (5)
  - BRAIN NEOPLASM [None]
  - CONCOMITANT DISEASE AGGRAVATED [None]
  - CONVULSION [None]
  - SENSATION OF HEAVINESS [None]
  - TUNNEL VISION [None]
